FAERS Safety Report 8531680-7 (Version None)
Quarter: 2012Q3

REPORT INFORMATION
  Report Type: 
  Country: None (occurrence: None)
  Receive Date: 20120723
  Receipt Date: 20120221
  Transmission Date: 20120928
  Serious: Yes (Death)
  Sender: FDA-Public Use
  Company Number: IL-009507513-1201USA02918

PATIENT

DRUGS (3)
  1. GLUCOMIN [Concomitant]
     Indication: DIABETES MELLITUS
  2. JANUVIA [Suspect]
     Indication: DIABETES MELLITUS
     Dosage: 100 MG, UNK
     Route: 048
     Dates: start: 20111101, end: 20111101
  3. INSULIN [Concomitant]
     Indication: DIABETES MELLITUS

REACTIONS (2)
  - RASH [None]
  - DEATH [None]
